FAERS Safety Report 21527854 (Version 1)
Quarter: 2022Q4

REPORT INFORMATION
  Report Type: Report from Study
  Country: US (occurrence: None)
  Receive Date: 20221031
  Receipt Date: 20221031
  Transmission Date: 20230112
  Serious: Yes (Hospitalization)
  Sender: FDA-Public Use
  Company Number: US-ROCHE-3172404

PATIENT
  Age: 64 Year
  Sex: Female
  Weight: 77.6 kg

DRUGS (3)
  1. IBRUTINIB [Suspect]
     Active Substance: IBRUTINIB
     Indication: Chronic lymphocytic leukaemia
     Dosage: ON DAYS 1-28, CYCLES 1-19?ON 26/JUL/2022, RECEIVED LAST DOSE OF IBRUTINIB
     Route: 048
     Dates: start: 20210504
  2. OBINUTUZUMAB [Suspect]
     Active Substance: OBINUTUZUMAB
     Indication: Chronic lymphocytic leukaemia
     Dosage: LAST DOSE OF OBINITUZUMAB: 21/SEP/2021?100 MG ON DAY 1 CYCLE 1, 1900 MG ON DAY 2 CYCLE 1, 1000 MG ON
     Route: 042
     Dates: start: 20210504, end: 20210921
  3. VENETOCLAX [Suspect]
     Active Substance: VENETOCLAX
     Indication: Chronic lymphocytic leukaemia
     Dosage: 21ANDLASTDOSEOF VENETOCLAX WAS :30/MAY/2022.?20 MG DAY 1-7CYCLE, 350 MG DAY S8-14,CYCLE 3100 MG DAY
     Route: 048
     Dates: start: 20210629, end: 20220530

REACTIONS (1)
  - COVID-19 [Recovered/Resolved]

NARRATIVE: CASE EVENT DATE: 20220730
